FAERS Safety Report 11977627 (Version 2)
Quarter: 2016Q1

REPORT INFORMATION
  Report Type: Spontaneous
  Country: US (occurrence: US)
  Receive Date: 20160129
  Receipt Date: 20160304
  Transmission Date: 20160526
  Serious: Yes (Other)
  Sender: FDA-Public Use
  Company Number: US-009507513-1601USA011454

PATIENT
  Sex: Female

DRUGS (2)
  1. CELESTONE SOLUSPAN [Suspect]
     Active Substance: BETAMETHASONE ACETATE\BETAMETHASONE SODIUM PHOSPHATE
     Dosage: 12 MG, 2 DOSES, 24 HOURS APART, FIRST COURSE
     Route: 030
  2. CELESTONE SOLUSPAN [Suspect]
     Active Substance: BETAMETHASONE ACETATE\BETAMETHASONE SODIUM PHOSPHATE
     Dosage: 12 MG, 2 DOSES, 24 HOURS APART, SECOND COURSE
     Route: 030

REACTIONS (2)
  - Surgery [Unknown]
  - Maternal exposure during pregnancy [Recovered/Resolved]
